FAERS Safety Report 7718189-5 (Version None)
Quarter: 2011Q3

REPORT INFORMATION
  Report Type: 
  Country: None (occurrence: None)
  Receive Date: 20110830
  Receipt Date: 20110816
  Transmission Date: 20111222
  Serious: Yes (Life-Threatening, Hospitalization, Other)
  Sender: FDA-Public Use
  Company Number: PHHY2011DE58388

PATIENT
  Sex: Male
  Weight: 95 kg

DRUGS (25)
  1. LANTUS [Concomitant]
     Indication: DIABETES MELLITUS
     Dosage: 24 IU, QD
     Route: 058
     Dates: start: 20091001
  2. RASILEZ HCT [Suspect]
     Indication: HYPERTENSION
     Dosage: 1 DF, QD
     Route: 048
     Dates: start: 20091001, end: 20100501
  3. ACE INHIBITOR NOS [Concomitant]
     Dosage: UNK UKN, UNK
  4. EBRANTIL [Concomitant]
     Indication: HYPERTENSION
     Dosage: 120 MG, QD
     Route: 048
     Dates: start: 20091001, end: 20100707
  5. ACETYLIC SALYCYLIC ACID [Concomitant]
     Indication: MYOCARDIAL INFARCTION
     Dosage: 1 DF, QD
     Dates: end: 20110501
  6. ANTIADRENERGIC AGENTS, CENTRALLY ACTING [Concomitant]
     Dosage: UNK
     Dates: start: 20100704
  7. GLIMEPIRIDE [Concomitant]
     Indication: DIABETES MELLITUS
     Dosage: 1.5 MG, QD
     Route: 048
     Dates: start: 20091001
  8. THIENOPYRIDINES [Concomitant]
     Dosage: UKN
  9. STATINS [Concomitant]
     Dosage: UNK
  10. RASILEZ HCT [Suspect]
     Indication: RENIN INCREASED
  11. VASODILATORS USED IN CARDIAC DISEASES [Concomitant]
     Dosage: UNK
     Dates: start: 20091020, end: 20100510
  12. HYDROCHLOROTHIAZIDE [Suspect]
     Dosage: 1 DF, QD
     Route: 048
  13. METOPROLOL SUCCINATE [Concomitant]
     Indication: HEART RATE
     Dosage: 1 DF, BID
     Route: 048
     Dates: start: 20090501
  14. PANTOPRAZOLE [Concomitant]
     Dosage: UNK
  15. NSAID'S [Concomitant]
     Dosage: UNK
  16. RAMIPRIL [Concomitant]
     Dosage: 1 DF, QD
  17. RASILEZ [Suspect]
     Indication: HYPERTENSION
     Dosage: UNK UKN, UNK
     Route: 048
     Dates: start: 20090319, end: 20091001
  18. ANTIADRENERGIC AGENTS, CENTRALLY ACTING [Concomitant]
     Dosage: UNK UKN, UNK
     Dates: end: 20091020
  19. FINASTERIDE [Concomitant]
     Indication: BENIGN PROSTATIC HYPERPLASIA
     Dosage: 5 MG, QD
     Route: 048
     Dates: start: 20091001
  20. RASILEZ [Suspect]
     Dosage: UNK UKN, UNK
     Route: 048
     Dates: start: 20100510
  21. DIOVAN [Suspect]
     Indication: HYPERTENSION
     Dosage: 1 DF, QD, 320 MG
     Route: 048
     Dates: end: 20090301
  22. DIOVAN [Suspect]
     Dosage: 320 MG, QD
     Route: 048
     Dates: start: 20090727, end: 20100510
  23. METOPROLOL TARTRATE [Concomitant]
     Indication: HEART RATE
     Dosage: 190 MG, QD
     Route: 048
     Dates: start: 20090501
  24. AMLODIPINE [Concomitant]
     Indication: HYPERTENSION
     Dosage: 10 MG, QD
     Route: 048
     Dates: start: 20091001
  25. HAEMITON [Concomitant]
     Dosage: 1 DF, QD

REACTIONS (15)
  - HYPERTENSION [None]
  - CARDIAC FAILURE [None]
  - LEFT VENTRICULAR DYSFUNCTION [None]
  - ACUTE MYOCARDIAL INFARCTION [None]
  - BLOOD GLUCOSE INCREASED [None]
  - BLOOD CREATININE INCREASED [None]
  - HYPERPROTEINAEMIA [None]
  - PANCREATIC PSEUDOCYST [None]
  - WEIGHT INCREASED [None]
  - GOUT [None]
  - BLOOD UREA INCREASED [None]
  - OEDEMA PERIPHERAL [None]
  - JOINT SWELLING [None]
  - PANCREATITIS ACUTE [None]
  - FLUID OVERLOAD [None]
